FAERS Safety Report 12614076 (Version 3)
Quarter: 2016Q3

REPORT INFORMATION
  Report Type: Spontaneous
  Country: US (occurrence: US)
  Receive Date: 20160802
  Receipt Date: 20160914
  Transmission Date: 20161109
  Serious: Yes (Death, Hospitalization)
  Sender: FDA-Public Use
  Company Number: US-PFIZER INC-2016365070

PATIENT
  Sex: Male

DRUGS (1)
  1. ADVIL [Suspect]
     Active Substance: IBUPROFEN
     Indication: HEADACHE
     Dosage: 200 MG, 1X/DAY
     Dates: end: 201606

REACTIONS (3)
  - Chronic obstructive pulmonary disease [Fatal]
  - Poor quality drug administered [Unknown]
  - Product quality issue [Unknown]
